FAERS Safety Report 21061948 (Version 1)
Quarter: 2022Q3

REPORT INFORMATION
  Report Type: Spontaneous
  Country: US (occurrence: US)
  Receive Date: 20220710
  Receipt Date: 20220710
  Transmission Date: 20221027
  Serious: No
  Sender: FDA-Public Use
  Company Number: US-TEVA-2022-US-2047172

PATIENT
  Age: 38 Year
  Sex: Female

DRUGS (2)
  1. CINQAIR [Suspect]
     Active Substance: RESLIZUMAB
     Indication: Asthma
     Route: 065
     Dates: start: 20170922, end: 20190730
  2. CINQAIR [Suspect]
     Active Substance: RESLIZUMAB
     Dosage: 10 MG/ML
     Route: 065
     Dates: start: 20211130

REACTIONS (2)
  - Drug ineffective [Unknown]
  - Hypersensitivity [Unknown]
